FAERS Safety Report 10224324 (Version 1)
Quarter: 2014Q2

REPORT INFORMATION
  Report Type: Spontaneous
  Country: US (occurrence: US)
  Receive Date: 20140609
  Receipt Date: 20140609
  Transmission Date: 20141212
  Serious: No
  Sender: FDA-Public Use
  Company Number: US-PFIZER INC-2014154907

PATIENT
  Age: 63 Year
  Sex: Female
  Weight: 61.68 kg

DRUGS (1)
  1. LEVOXYL [Suspect]
     Dosage: 100 UG, (5 DAYS A WEEK)
     Route: 048
     Dates: start: 198710

REACTIONS (5)
  - Arthralgia [Unknown]
  - Swelling [Unknown]
  - Fluid retention [Unknown]
  - Feeling abnormal [Unknown]
  - Dizziness [Unknown]
